FAERS Safety Report 21084732 (Version 3)
Quarter: 2022Q3

REPORT INFORMATION
  Report Type: Spontaneous
  Country: US (occurrence: US)
  Receive Date: 20220714
  Receipt Date: 20220725
  Transmission Date: 20221027
  Serious: No
  Sender: FDA-Public Use
  Company Number: US-PFIZER INC-202200949250

PATIENT
  Age: 75 Year
  Sex: Male
  Weight: 90.72 kg

DRUGS (4)
  1. GABAPENTIN [Suspect]
     Active Substance: GABAPENTIN
     Indication: Spinal cord disorder
     Dosage: UNK, 2X/DAY (TAKE IT AT ABOUT 9 IN THE MORNING AND 9 IN THE EVENING BEFORE BED TIME)
  2. GABAPENTIN [Suspect]
     Active Substance: GABAPENTIN
     Indication: Spinal disorder
     Dosage: 100MG, 3X/DAY (WAS TAKING IT 3 TIMES A DAY)
     Route: 048
     Dates: end: 202201
  3. DULERA [Concomitant]
     Active Substance: FORMOTEROL FUMARATE DIHYDRATE\MOMETASONE FUROATE
     Indication: Asthma
     Dosage: UNK
  4. SPIRIVA [Concomitant]
     Active Substance: TIOTROPIUM BROMIDE MONOHYDRATE
     Indication: Asthma
     Dosage: UNK

REACTIONS (7)
  - Somnolence [Not Recovered/Not Resolved]
  - Malaise [Unknown]
  - Somnolence [Unknown]
  - Rhinorrhoea [Unknown]
  - Fatigue [Unknown]
  - Irritability [Unknown]
  - Dizziness [Not Recovered/Not Resolved]
